FAERS Safety Report 9006442 (Version 2)
Quarter: 2013Q2

REPORT INFORMATION
  Report Type: Spontaneous
  Country: GB (occurrence: None)
  Receive Date: 20121227
  Receipt Date: 20130603
  Transmission Date: 20140414
  Serious: Yes (Other)
  Sender: FDA-Public Use
  Company Number: 2012-01793

PATIENT
  Sex: Male

DRUGS (1)
  1. SIMVASTATIN [Suspect]
     Indication: BLOOD CHOLESTEROL INCREASED
     Route: 048

REACTIONS (13)
  - Atrial tachycardia [None]
  - Drug interaction [None]
  - Muscle spasms [None]
  - Food interaction [None]
  - Fatigue [None]
  - Malaise [None]
  - Discomfort [None]
  - Skin discolouration [None]
  - Extrasystoles [None]
  - Chest pain [None]
  - Hyperhidrosis [None]
  - Aortic dilatation [None]
  - Hypotension [None]
